FAERS Safety Report 10227347 (Version 1)
Quarter: 2014Q2

REPORT INFORMATION
  Report Type: Spontaneous
  Country: US (occurrence: US)
  Receive Date: 20140610
  Receipt Date: 20140610
  Transmission Date: 20141212
  Serious: Yes (Hospitalization, Other)
  Sender: FDA-Public Use
  Company Number: US-SUN PHARMACEUTICAL INDUSTRIES LTD-2014SUN01224

PATIENT
  Sex: 0

DRUGS (5)
  1. BUPROPION HYDROCHLORIDE EXTENDED-RELEASE TABLETS, USP (SR) 150MG [Suspect]
     Indication: DEPRESSION
     Dosage: 150 MG, BID
     Route: 048
  2. OXYCODONE [Suspect]
     Indication: PAIN
     Dosage: 5-10 MG EVERY 4 HOURS PRN
     Route: 048
  3. TRAMADOL HCL 50MG TABLET [Suspect]
     Indication: PAIN
     Dosage: 50 MG, QID
     Route: 048
  4. TRAMADOL HCL 50MG TABLET [Suspect]
     Dosage: 100 UNK, UNK
     Route: 048
  5. TRAZODONE [Suspect]
     Indication: INSOMNIA
     Dosage: 25 MG, QD AT NIGHT
     Route: 048

REACTIONS (2)
  - Serotonin syndrome [Recovered/Resolved]
  - Drug interaction [Unknown]
